FAERS Safety Report 15518148 (Version 1)
Quarter: 2018Q4

REPORT INFORMATION
  Report Type: Spontaneous
  Country: US (occurrence: US)
  Receive Date: 20181018
  Receipt Date: 20181018
  Transmission Date: 20190205
  Serious: Yes (Hospitalization, Other)
  Sender: FDA-Public Use
  Company Number: None

PATIENT
  Age: 26 Year
  Sex: Female
  Weight: 74.84 kg

DRUGS (1)
  1. IUD NOS [Suspect]
     Active Substance: COPPER OR LEVONORGESTREL

REACTIONS (4)
  - Pneumonia [None]
  - Ectopic pregnancy with contraceptive device [None]
  - Abortion spontaneous [None]
  - Pyrexia [None]

NARRATIVE: CASE EVENT DATE: 20180509
